FAERS Safety Report 13886475 (Version 2)
Quarter: 2018Q3

REPORT INFORMATION
  Report Type: Spontaneous
  Country: US (occurrence: US)
  Receive Date: 20170821
  Receipt Date: 20180727
  Transmission Date: 20181010
  Serious: No
  Sender: FDA-Public Use
  Company Number: US-ALLERGAN-1729871US

PATIENT
  Sex: Male

DRUGS (2)
  1. ANDRODERM [Suspect]
     Active Substance: TESTOSTERONE
     Indication: HORMONE REPLACEMENT THERAPY
     Dosage: 4 MG, QD
     Route: 062
     Dates: end: 2014
  2. ANDRODERM [Suspect]
     Active Substance: TESTOSTERONE
     Dosage: UNK
     Route: 062
     Dates: end: 2014

REACTIONS (3)
  - Breast tenderness [Unknown]
  - Gynaecomastia [Not Recovered/Not Resolved]
  - Nipple pain [Not Recovered/Not Resolved]
